FAERS Safety Report 5667550-1 (Version None)
Quarter: 2008Q1

REPORT INFORMATION
  Report Type: 
  Country: None (occurrence: None)
  Receive Date: 20080315
  Receipt Date: 20080124
  Transmission Date: 20080703
  Serious: No
  Sender: FDA-Public Use
  Company Number: US-ABBOTT-08P-163-0435176-00

PATIENT
  Sex: Female
  Weight: 76.726 kg

DRUGS (10)
  1. HUMIRA [Suspect]
     Indication: RHEUMATOID ARTHRITIS
     Route: 058
     Dates: start: 20060101
  2. HUMIRA [Suspect]
     Dosage: PRE-FILLED SYRINGE
     Route: 058
     Dates: start: 20040101, end: 20060101
  3. AZATHIOPRINE [Concomitant]
     Indication: RHEUMATOID ARTHRITIS
     Route: 048
  4. SERETIDE [Concomitant]
     Indication: BRONCHIOLITIS
     Route: 055
  5. SPIROAIR [Concomitant]
     Indication: BRONCHIOLITIS
     Route: 055
  6. BACTRIM [Concomitant]
     Indication: PROPHYLAXIS
     Route: 048
  7. BACTRIM [Concomitant]
     Indication: BRONCHIOLITIS
  8. METOCLOPRAMIDE [Concomitant]
     Indication: GASTROOESOPHAGEAL REFLUX DISEASE
     Route: 048
  9. ZOLPIDEM TARTRATE [Concomitant]
     Indication: INSOMNIA
     Route: 048
  10. PIRBUTEROL ACETATE [Concomitant]
     Indication: BRONCHIOLITIS
     Route: 055

REACTIONS (1)
  - INJECTION SITE PAIN [None]
